FAERS Safety Report 21305629 (Version 1)
Quarter: 2022Q3

REPORT INFORMATION
  Report Type: Spontaneous
  Country: US (occurrence: US)
  Receive Date: 20220908
  Receipt Date: 20220908
  Transmission Date: 20221027
  Serious: Yes (Other)
  Sender: FDA-Public Use
  Company Number: US-SPECGX-T202201845

PATIENT
  Sex: Male

DRUGS (5)
  1. ACETAMINOPHEN\HYDROCODONE [Suspect]
     Active Substance: ACETAMINOPHEN\HYDROCODONE
     Indication: Breakthrough pain
     Dosage: 1 DOSAGE FORM, PRN (EVERY 8 HOUR, AS NEEDED)
     Route: 065
  2. MORPHINE [Suspect]
     Active Substance: MORPHINE
     Indication: Back pain
     Dosage: 60 MILLIGRAM, BID
     Route: 065
  3. MORPHINE [Suspect]
     Active Substance: MORPHINE
     Indication: Arthritis
  4. HYDROMORPHONE [Suspect]
     Active Substance: HYDROMORPHONE
     Indication: Back pain
     Dosage: 16 MILLIGRAM, QD
     Route: 065
  5. HYDROMORPHONE [Suspect]
     Active Substance: HYDROMORPHONE
     Indication: Arthritis

REACTIONS (2)
  - Mental status changes [Unknown]
  - Product prescribing error [Unknown]
